FAERS Safety Report 13593364 (Version 1)
Quarter: 2017Q2

REPORT INFORMATION
  Report Type: Spontaneous
  Country: US (occurrence: US)
  Receive Date: 20170530
  Receipt Date: 20170530
  Transmission Date: 20170830
  Serious: Yes (Other)
  Sender: FDA-Public Use
  Company Number: US-SMITH AND NEPHEW, INC-2017SMT00370

PATIENT
  Sex: Female
  Weight: 68.27 kg

DRUGS (8)
  1. AMLODIPINE [Concomitant]
     Active Substance: AMLODIPINE BESYLATE
  2. UNSPECIFIED THYROID MEDICATION [Concomitant]
     Active Substance: UNSPECIFIED INGREDIENT
  3. POTASSIUM [Concomitant]
     Active Substance: POTASSIUM
  4. UNSPECIFIED DIURETIC [Concomitant]
     Active Substance: UNSPECIFIED INGREDIENT
  5. UNSPECIFIED INSULIN [Concomitant]
     Active Substance: INSULIN NOS
  6. UNSPECIFIED VITAMIN [Concomitant]
     Active Substance: VITAMINS
  7. ASPIRIN. [Concomitant]
     Active Substance: ASPIRIN
  8. REGRANEX [Suspect]
     Active Substance: BECAPLERMIN
     Indication: DIABETIC ULCER
     Dosage: UNK UNK, 1X/DAY FOR 12 HOURS ON AND 12 HOURS OFF
     Route: 061
     Dates: start: 201704, end: 201705

REACTIONS (3)
  - Wound complication [Not Recovered/Not Resolved]
  - Impaired healing [Not Recovered/Not Resolved]
  - Leg amputation [Recovered/Resolved with Sequelae]
